FAERS Safety Report 16262192 (Version 1)
Quarter: 2019Q2

REPORT INFORMATION
  Report Type: Spontaneous
  Country: CA (occurrence: CA)
  Receive Date: 20190501
  Receipt Date: 20190501
  Transmission Date: 20190711
  Serious: Yes (Hospitalization, Other)
  Sender: FDA-Public Use
  Company Number: CA-PFIZER INC-2019048529

PATIENT
  Age: 65 Year
  Sex: Male

DRUGS (3)
  1. SULFASALAZINE. [Concomitant]
     Active Substance: SULFASALAZINE
     Indication: RHEUMATOID ARTHRITIS
     Dosage: 1 G, 2X/DAY
     Route: 048
     Dates: start: 2014
  2. TYLENOL [Concomitant]
     Active Substance: ACETAMINOPHEN
     Dosage: UNK, AS NEEDED
  3. XELJANZ [Suspect]
     Active Substance: TOFACITINIB CITRATE
     Indication: RHEUMATOID ARTHRITIS
     Dosage: 5 MG, 2X/DAY
     Route: 048
     Dates: start: 20190128, end: 201904

REACTIONS (10)
  - Systemic lupus erythematosus [Recovering/Resolving]
  - Night sweats [Unknown]
  - Abdominal pain [Unknown]
  - Pleural effusion [Recovering/Resolving]
  - Viral infection [Unknown]
  - Lower respiratory tract infection [Unknown]
  - Pyrexia [Unknown]
  - Lung disorder [Unknown]
  - Cough [Unknown]
  - Pneumonia staphylococcal [Recovering/Resolving]

NARRATIVE: CASE EVENT DATE: 201904
